FAERS Safety Report 5519240-3 (Version None)
Quarter: 2007Q4

REPORT INFORMATION
  Report Type: 
  Country: None (occurrence: None)
  Receive Date: 20071116
  Receipt Date: 20071107
  Transmission Date: 20080405
  Serious: Yes (Hospitalization)
  Sender: FDA-Public Use
  Company Number: US-AMGEN-KDL238906

PATIENT
  Sex: Male
  Weight: 81.7 kg

DRUGS (5)
  1. ENBREL [Suspect]
     Indication: RHEUMATOID ARTHRITIS
     Route: 058
     Dates: start: 20031203, end: 20070701
  2. CARTIA XT [Concomitant]
  3. PREDNISONE TAB [Concomitant]
  4. LANOXIN [Concomitant]
  5. COUMADIN [Concomitant]

REACTIONS (15)
  - ARTHRALGIA [None]
  - ARTHRITIS BACTERIAL [None]
  - ATRIAL TACHYCARDIA [None]
  - CHILLS [None]
  - CHONDROCALCINOSIS [None]
  - DEHYDRATION [None]
  - HAEMARTHROSIS [None]
  - IMPLANTABLE DEFIBRILLATOR MALFUNCTION [None]
  - INTERNATIONAL NORMALISED RATIO INCREASED [None]
  - JOINT INJURY [None]
  - JOINT STIFFNESS [None]
  - OSTEOARTHRITIS [None]
  - PNEUMOCOCCAL INFECTION [None]
  - POST PROCEDURAL DIARRHOEA [None]
  - PROSTATE CANCER [None]
